FAERS Safety Report 10302031 (Version 1)
Quarter: 2014Q3

REPORT INFORMATION
  Report Type: Spontaneous
  Country: HU (occurrence: None)
  Receive Date: 20140709
  Receipt Date: 20140709
  Transmission Date: 20150326
  Serious: Yes (Life-Threatening, Hospitalization)
  Sender: FDA-Public Use
  Company Number: 2014COR00023

PATIENT
  Age: 21 Year
  Sex: Male

DRUGS (1)
  1. AMPHETAMINE (AMFETAMINE) UNKNOWN [Suspect]
     Active Substance: AMPHETAMINE

REACTIONS (13)
  - Hyperkalaemia [None]
  - Loss of consciousness [None]
  - Oliguria [None]
  - Tachypnoea [None]
  - Decubitus ulcer [None]
  - Metabolic acidosis [None]
  - Rhabdomyolysis [None]
  - Toxicity to various agents [None]
  - Agitation [None]
  - Sinus tachycardia [None]
  - Renal failure acute [None]
  - Hypoglycaemia [None]
  - Hemiparesis [None]
